FAERS Safety Report 9568607 (Version 2)
Quarter: 2014Q1

REPORT INFORMATION
  Report Type: Spontaneous
  Country: US (occurrence: US)
  Receive Date: 20130930
  Receipt Date: 20140303
  Transmission Date: 20141002
  Serious: Yes (Hospitalization)
  Sender: FDA-Public Use
  Company Number: US-AMGEN-USASP2013063421

PATIENT
  Age: 56 Year
  Sex: Male
  Weight: 70.75 kg

DRUGS (4)
  1. ENBREL [Suspect]
     Indication: RHEUMATOID ARTHRITIS
     Dosage: 0.98 ML, QWK
     Route: 058
     Dates: start: 2010
  2. ATORVASTATIN [Concomitant]
     Dosage: UNK UNK, AS NECESSARY
  3. FOLIC ACID [Concomitant]
     Dosage: UNK UNK, AS NECESSARY
  4. METHOTREXATE [Concomitant]
     Dosage: UNK UNK, AS NECESSARY

REACTIONS (1)
  - Pneumonia [Recovered/Resolved]
